FAERS Safety Report 23531693 (Version 2)
Quarter: 2024Q1

REPORT INFORMATION
  Report Type: Spontaneous
  Country: US (occurrence: US)
  Receive Date: 20240216
  Receipt Date: 20240320
  Transmission Date: 20240409
  Serious: Yes (Hospitalization, Other)
  Sender: FDA-Public Use
  Company Number: US-BRISTOL-MYERS SQUIBB COMPANY-2024-024747

PATIENT
  Age: 94 Year
  Sex: Female

DRUGS (1)
  1. LENALIDOMIDE [Suspect]
     Active Substance: LENALIDOMIDE
     Indication: Breast cancer
     Dosage: TAKE 1 CAPSULE BY MOUTH EVERY OTHER DAY FOR 21 DAYS THEN 7 DAYS OFF
     Route: 048
     Dates: start: 20221115

REACTIONS (4)
  - Cellulitis [Recovering/Resolving]
  - Skin cancer [Recovering/Resolving]
  - Off label use [Unknown]
  - Drug ineffective [Unknown]
